FAERS Safety Report 7281992-2 (Version None)
Quarter: 2011Q1

REPORT INFORMATION
  Report Type: 
  Country: None (occurrence: None)
  Receive Date: 20110208
  Receipt Date: 20110203
  Transmission Date: 20110831
  Serious: Yes (Hospitalization, Other)
  Sender: FDA-Public Use
  Company Number: JP-PFIZER INC-2011025239

PATIENT
  Age: 58 Year
  Sex: Female

DRUGS (7)
  1. ALDACTONE [Concomitant]
     Dosage: 1 DF, UNK
  2. LYRICA [Suspect]
     Indication: PAIN
     Dosage: 150 MG, DAILY
     Route: 048
     Dates: start: 20101217, end: 20110112
  3. CELECOXIB [Concomitant]
     Dosage: 100 MG, 2X/DAY
     Route: 048
  4. ALENDRONATE SODIUM [Concomitant]
     Dosage: 1 DF, WEEKLY
     Route: 048
  5. ONE-ALPHA [Concomitant]
     Dosage: 1 DF, 2X/DAY
     Route: 048
  6. LASIX [Concomitant]
     Dosage: 20 MG, 2X/DAY
     Route: 048
  7. LOXONIN [Concomitant]
     Dosage: 1 DF, 3X/DAY
     Route: 048

REACTIONS (4)
  - BLOOD CREATINE PHOSPHOKINASE INCREASED [None]
  - MYALGIA [None]
  - RENAL IMPAIRMENT [None]
  - TRANSAMINASES INCREASED [None]
